FAERS Safety Report 22055443 (Version 1)
Quarter: 2023Q1

REPORT INFORMATION
  Report Type: Spontaneous
  Country: RU (occurrence: None)
  Receive Date: 20230302
  Receipt Date: 20230302
  Transmission Date: 20230417
  Serious: Yes (Other)
  Sender: FDA-Public Use
  Company Number: 2023A050202

PATIENT
  Sex: Male

DRUGS (12)
  1. ROPIVACAINE HYDROCHLORIDE [Suspect]
     Active Substance: ROPIVACAINE HYDROCHLORIDE
     Indication: Epidural anaesthesia
     Dosage: 3.75 MILLIGRAM PER MILLILITRE AT A RATE OF 2-4 ML / H3.75MG/ML
     Route: 008
  2. PROPOFOL [Suspect]
     Active Substance: PROPOFOL
     Indication: Induction of anaesthesia
     Dosage: UNK MG/KG, UNK
     Route: 042
  3. OMEPRAZOLE [Suspect]
     Active Substance: OMEPRAZOLE
     Indication: Premedication
     Dosage: 20 MG, QD
     Route: 048
  4. PREGABALIN [Suspect]
     Active Substance: PREGABALIN
     Indication: Premedication
     Dosage: 75 MG, QD
     Route: 048
  5. CLEMASTINE [Suspect]
     Active Substance: CLEMASTINE
     Indication: Premedication
     Dosage: 1 MG, QD
     Route: 048
  6. DEXAMETHASONE [Suspect]
     Active Substance: DEXAMETHASONE
     Indication: Prophylaxis
     Dosage: 4 MG, SINGLE
     Route: 030
  7. DEXAMETHASONE [Suspect]
     Active Substance: DEXAMETHASONE
     Indication: Prophylaxis of nausea and vomiting
     Dosage: 4 MG, SINGLE
     Route: 030
  8. LORNOXICAM [Suspect]
     Active Substance: LORNOXICAM
     Indication: Prophylaxis
     Dosage: 8 MG, SINGLE
  9. FENTANYL [Suspect]
     Active Substance: FENTANYL
     Indication: Induction and maintenance of anaesthesia
     Dosage: UNK MCG/KG, UNK
     Route: 042
  10. ROCURONIUM BROMIDE [Suspect]
     Active Substance: ROCURONIUM BROMIDE
     Indication: Hypotonia
     Dosage: UNK MG/KG, UNK
  11. SEVOFLURANE [Suspect]
     Active Substance: SEVOFLURANE
     Indication: Maintenance of anaesthesia
     Dosage: UNK
     Route: 055
  12. HEPARIN [Suspect]
     Active Substance: HEPARIN SODIUM
     Indication: Thrombosis prophylaxis
     Dosage: UNK
     Route: 058

REACTIONS (1)
  - Postoperative delirium [Recovered/Resolved]
